FAERS Safety Report 12594410 (Version 1)
Quarter: 2016Q3

REPORT INFORMATION
  Report Type: Spontaneous
  Country: US (occurrence: US)
  Receive Date: 20160726
  Receipt Date: 20160726
  Transmission Date: 20161109
  Serious: No
  Sender: FDA-Public Use
  Company Number: US-UNITED THERAPEUTICS-UNT-2016-007658

PATIENT
  Age: 3 Year
  Sex: Female
  Weight: 13.61 kg

DRUGS (3)
  1. TRACLEER [Concomitant]
     Active Substance: BOSENTAN
     Indication: PRODUCT USED FOR UNKNOWN INDICATION
  2. REMODULIN [Suspect]
     Active Substance: TREPROSTINIL
     Indication: PULMONARY HYPERTENSION
     Dosage: 0.0535 ?G/KG, CONTINUING
     Route: 058
     Dates: start: 20140825
  3. REMODULIN [Suspect]
     Active Substance: TREPROSTINIL
     Dosage: 0.0595 ?G/KG, UNK
     Route: 058

REACTIONS (5)
  - Infusion site nodule [Unknown]
  - Infusion site induration [Not Recovered/Not Resolved]
  - Infusion site erythema [Unknown]
  - Infusion site haemorrhage [Unknown]
  - Fatigue [Unknown]

NARRATIVE: CASE EVENT DATE: 201605
